FAERS Safety Report 8535060-X (Version None)
Quarter: 2012Q3

REPORT INFORMATION
  Report Type: 
  Country: None (occurrence: None)
  Receive Date: 20120724
  Receipt Date: 20120718
  Transmission Date: 20120928
  Serious: Yes (Hospitalization, Other)
  Sender: FDA-Public Use
  Company Number: FR-PFIZER INC-2012172886

PATIENT
  Age: 43 Year
  Sex: Female
  Weight: 83 kg

DRUGS (20)
  1. VALPROIC ACID [Suspect]
     Dosage: 300 MG, 4X/DAY
     Route: 048
     Dates: end: 20111118
  2. VENTOLIN [Concomitant]
  3. FLUTICASONE PROPIONATE/SALMETEROL [Concomitant]
  4. ACAMPROSATE CALCIUM [Concomitant]
  5. THERALENE [Concomitant]
  6. LITHIUM CARBONATE [Concomitant]
  7. EUPRESSYL [Suspect]
     Dosage: 60 MG, 1X/DAY
     Route: 048
     Dates: start: 20120114
  8. LEPTICUR [Concomitant]
  9. ZOLPIDEM TARTRATE [Suspect]
     Dosage: 10 MG, 1X/DAY
     Route: 048
     Dates: end: 20111118
  10. TERCIAN [Suspect]
     Dosage: 100 MG, 2X/DAY
     Route: 048
     Dates: end: 20111118
  11. SEROQUEL [Suspect]
     Dosage: 300 MG, 1X/DAY
     Route: 048
     Dates: start: 20120104, end: 20120129
  12. LYRICA [Concomitant]
  13. VALIUM [Concomitant]
  14. ATORVASTATIN [Suspect]
     Dosage: UNK
     Dates: start: 20120115, end: 20120118
  15. PAROXETINE [Suspect]
     Dosage: 20 MG, 1X/DAY
     Dates: end: 20111118
  16. GLUCOPHAGE [Suspect]
     Dosage: 850 MG, UNK
     Route: 048
  17. RABEPRAZOLE SODIUM [Suspect]
     Dosage: 20 MG, 1X/DAY
     Route: 048
  18. CORDARONE [Suspect]
     Indication: ATRIAL FIBRILLATION
     Dosage: 200 MG, 1X/DAY
     Route: 048
     Dates: start: 20111201, end: 20120125
  19. ALFUZOSIN HYDROCHLORIDE [Suspect]
     Dosage: 10 MG, 1X/DAY
     Route: 048
     Dates: start: 20120121
  20. SULFARLEM [Concomitant]

REACTIONS (9)
  - CYTOLYTIC HEPATITIS [None]
  - RENAL FAILURE [None]
  - HYPERTHERMIA [None]
  - DEVICE RELATED INFECTION [None]
  - GAMMA-GLUTAMYLTRANSFERASE INCREASED [None]
  - BACTERIAL TEST POSITIVE [None]
  - BLOOD ALKALINE PHOSPHATASE INCREASED [None]
  - CHOLESTASIS [None]
  - ATRIAL FIBRILLATION [None]
